FAERS Safety Report 5724785-7 (Version None)
Quarter: 2008Q2

REPORT INFORMATION
  Report Type: 
  Country: None (occurrence: None)
  Receive Date: 20080501
  Receipt Date: 20080416
  Transmission Date: 20081010
  Serious: Yes (Other)
  Sender: FDA-Public Use
  Company Number: US-BAYER-200811510BCC

PATIENT
  Age: 21 Year
  Sex: Female

DRUGS (3)
  1. ALKA-SELTZER ORIGINAL EFFERVESCENT [Suspect]
     Indication: NASOPHARYNGITIS
     Route: 048
  2. ALKA SELTZER MORNING RELIEF EFFERVESCENT [Suspect]
     Indication: NASOPHARYNGITIS
     Route: 048
  3. ALKA SELTZER REGULAR EFFERVESCENT [Suspect]
     Indication: NASOPHARYNGITIS
     Route: 048
     Dates: start: 19760101

REACTIONS (1)
  - ABORTION SPONTANEOUS [None]
